FAERS Safety Report 4326767-9 (Version None)
Quarter: 2004Q1

REPORT INFORMATION
  Report Type: 
  Country: None (occurrence: None)
  Receive Date: 20040330
  Receipt Date: 20040330
  Transmission Date: 20041129
  Serious: No
  Sender: FDA-Public Use
  Company Number: None

PATIENT
  Sex: Male
  Weight: 105.6881 kg

DRUGS (1)
  1. NAMENDA [Suspect]
     Dosage: 5MG TABLETS
     Dates: start: 20040203

REACTIONS (9)
  - ABNORMAL BEHAVIOUR [None]
  - AGGRESSION [None]
  - ANGER [None]
  - CONFUSIONAL STATE [None]
  - LETHARGY [None]
  - MEDICATION ERROR [None]
  - OEDEMA [None]
  - SOMNOLENCE [None]
  - SPEECH DISORDER [None]
